FAERS Safety Report 7652556-3 (Version None)
Quarter: 2011Q3

REPORT INFORMATION
  Report Type: 
  Country: None (occurrence: None)
  Receive Date: 20110803
  Receipt Date: 20110730
  Transmission Date: 20111222
  Serious: Yes (Hospitalization)
  Sender: FDA-Public Use
  Company Number: US-BRISTOL-MYERS SQUIBB COMPANY-15895972

PATIENT
  Age: 11 Year
  Sex: Male
  Weight: 32 kg

DRUGS (11)
  1. ETOPOSIDE [Suspect]
     Indication: ACUTE LYMPHOCYTIC LEUKAEMIA
     Dosage: COURSES:2LAST DOSE: 20JUN2011
     Route: 042
     Dates: start: 20110526
  2. CYTARABINE [Suspect]
     Indication: ACUTE LYMPHOCYTIC LEUKAEMIA
     Route: 042
     Dates: start: 20110526
  3. FILGRASTIM [Concomitant]
  4. SPRYCEL [Suspect]
     Indication: ACUTE LYMPHOCYTIC LEUKAEMIA
     Dosage: LAST DOSE:14JUL11 COURSES:2
     Route: 048
     Dates: start: 20110526
  5. HYDROCORTISONE [Suspect]
     Indication: ACUTE LYMPHOCYTIC LEUKAEMIA
     Dates: start: 20110526
  6. METHOTREXATE [Suspect]
     Indication: ACUTE LYMPHOCYTIC LEUKAEMIA
     Route: 048
     Dates: start: 20110526
  7. VINCRISTINE SULFATE [Suspect]
     Indication: ACUTE LYMPHOCYTIC LEUKAEMIA
     Dosage: LAST DOSE: 02JUN2011
     Route: 042
     Dates: start: 20110526
  8. MESNA [Concomitant]
  9. IFOSFAMIDE [Suspect]
     Indication: ACUTE LYMPHOCYTIC LEUKAEMIA
     Dosage: COURSES:2 LAST DOSE: 20JUN11
     Route: 042
     Dates: start: 20110526
  10. DAUNORUBICIN HCL [Suspect]
     Indication: ACUTE LYMPHOCYTIC LEUKAEMIA
     Dosage: LAST DOE:02JUN11
     Route: 042
     Dates: start: 20110526
  11. PREDNISONE [Suspect]
     Indication: ACUTE LYMPHOCYTIC LEUKAEMIA
     Dosage: LAST DOSE:08JUN11
     Route: 048
     Dates: start: 20110526

REACTIONS (3)
  - DEHYDRATION [None]
  - DECREASED APPETITE [None]
  - NAUSEA [None]
